FAERS Safety Report 16796107 (Version 1)
Quarter: 2019Q3

REPORT INFORMATION
  Report Type: Spontaneous
  Country: BR (occurrence: BR)
  Receive Date: 20190911
  Receipt Date: 20190911
  Transmission Date: 20191005
  Serious: Yes (Hospitalization)
  Sender: FDA-Public Use
  Company Number: BR-CELGENEUS-BRA-20190410385

PATIENT
  Age: 81 Year
  Sex: Male

DRUGS (1)
  1. VIDAZA [Suspect]
     Active Substance: AZACITIDINE
     Indication: MYELODYSPLASTIC SYNDROME
     Dosage: UNKNOWN DOSE
     Route: 065
     Dates: start: 20160408

REACTIONS (4)
  - Autoimmune disorder [Unknown]
  - Tooth infection [Unknown]
  - Application site inflammation [Unknown]
  - Abscess [Unknown]

NARRATIVE: CASE EVENT DATE: 20190825
